FAERS Safety Report 23425034 (Version 1)
Quarter: 2024Q1

REPORT INFORMATION
  Report Type: Spontaneous
  Country: DE (occurrence: DE)
  Receive Date: 20240121
  Receipt Date: 20240121
  Transmission Date: 20240409
  Serious: Yes (Death)
  Sender: FDA-Public Use
  Company Number: DE-JNJFOC-20230967329

PATIENT
  Age: 9 Decade
  Sex: Female

DRUGS (3)
  1. DEXAMETHASONE [Suspect]
     Active Substance: DEXAMETHASONE
     Indication: Plasma cell myeloma
     Dosage: 20.000MG
     Route: 042
     Dates: start: 20230721, end: 20230804
  2. DARZALEX [Suspect]
     Active Substance: DARATUMUMAB
     Indication: Plasma cell myeloma
     Dosage: 16.000MG/KG
     Route: 042
     Dates: start: 20230620, end: 20230804
  3. LENALIDOMIDE [Suspect]
     Active Substance: LENALIDOMIDE
     Indication: Plasma cell myeloma
     Dosage: 10.000MG
     Route: 065
     Dates: start: 20230620, end: 20230810

REACTIONS (1)
  - Septic shock [Fatal]

NARRATIVE: CASE EVENT DATE: 20230822
